FAERS Safety Report 6839687-2 (Version None)
Quarter: 2010Q3

REPORT INFORMATION
  Report Type: 
  Country: None (occurrence: None)
  Receive Date: 20100714
  Receipt Date: 20100706
  Transmission Date: 20110219
  Serious: Yes (Other)
  Sender: FDA-Public Use
  Company Number: BR-PFIZER INC-2010073270

PATIENT
  Sex: Female

DRUGS (3)
  1. FRONTAL XR [Suspect]
     Indication: ANXIETY
     Dosage: 0.5 MG, 1X/DAY, 1 TABLET AT 16:00
     Route: 048
     Dates: start: 20070101
  2. CRESTOR [Concomitant]
     Dosage: 10 MG, 1X/DAY, 1 TABLET NIGHTLY
     Route: 048
  3. COLECALCIFEROL [Concomitant]
     Dosage: 10 DROPS DAILY IN THE MORNING

REACTIONS (2)
  - EXPIRED DRUG ADMINISTERED [None]
  - VASCULITIS [None]
